FAERS Safety Report 4353810-3 (Version None)
Quarter: 2004Q2

REPORT INFORMATION
  Report Type: 
  Country: None (occurrence: None)
  Receive Date: 20040505
  Receipt Date: 20040505
  Transmission Date: 20050107
  Serious: Yes (Other)
  Sender: FDA-Public Use
  Company Number: None

PATIENT
  Age: 82 Year
  Sex: Female
  Weight: 61.6892 kg

DRUGS (1)
  1. CARBIDOPA AND LEVODOPA [Suspect]
     Indication: RESTLESS LEGS SYNDROME
     Dosage: PO -ONE 5 AM 1 1/2 10 AM 1 1/2 -2 PM' 2-9 PM
     Route: 048

REACTIONS (3)
  - DRUG INEFFECTIVE [None]
  - PAIN [None]
  - PHARMACEUTICAL PRODUCT COMPLAINT [None]
